FAERS Safety Report 8076928-0 (Version None)
Quarter: 2012Q1

REPORT INFORMATION
  Report Type: 
  Country: None (occurrence: None)
  Receive Date: 20120127
  Receipt Date: 20120116
  Transmission Date: 20120608
  Serious: Yes (Other)
  Sender: FDA-Public Use
  Company Number: PHHY2012DE003967

PATIENT
  Sex: Male
  Weight: 80 kg

DRUGS (18)
  1. TORSEMIDE [Concomitant]
     Dosage: 1 DF, QD
  2. AMITRIPTYLINE ^NEURAXPHARM^ [Concomitant]
     Dosage: 4 DF, QD
  3. SIMVA [Concomitant]
     Dosage: 1 DF, QD
  4. ALLOPURINOL [Concomitant]
     Dosage: 1 DF, QD
  5. BERODUAL [Concomitant]
  6. RAMIPRIL [Concomitant]
     Dosage: 1 DF, QD
     Dates: start: 20120101
  7. TAMSULOSIN HCL [Concomitant]
     Dosage: 1 DF, QD
  8. ASPIRIN [Concomitant]
     Dosage: 1 DF, QD
  9. SPIRIVA [Concomitant]
     Dosage: 1 DF, QD
  10. PREDNISOLONE [Concomitant]
     Dosage: 1 DF, QD
     Dates: start: 20120101
  11. BISOPROLOL FUMARATE [Concomitant]
     Dosage: 0.5 DF, QD
  12. AMLODIPINE [Concomitant]
     Dosage: 1 DF, QD
  13. RAMIPRIL [Concomitant]
     Dosage: 0.5 DF, QD
  14. SPASMEX [Concomitant]
     Dosage: 1 DF, QD
  15. ONBREZ [Suspect]
     Indication: CHRONIC OBSTRUCTIVE PULMONARY DISEASE
     Dosage: 150 UG, UNK
     Dates: start: 20110501, end: 20120111
  16. PANTOPRAZOLE [Concomitant]
     Dosage: 1 DF, QD
  17. SYMBICORT [Concomitant]
     Dosage: 4 DF, QD
  18. SPASMEX [Concomitant]
     Dosage: 0.5 DF, QD
     Dates: start: 20120101

REACTIONS (3)
  - RESPIRATORY FAILURE [None]
  - FLUID RETENTION [None]
  - DYSPNOEA [None]
